FAERS Safety Report 5319351-1 (Version None)
Quarter: 2007Q2

REPORT INFORMATION
  Report Type: 
  Country: None (occurrence: None)
  Receive Date: 20070508
  Receipt Date: 20070426
  Transmission Date: 20071010
  Serious: Yes (Death, Other)
  Sender: FDA-Public Use
  Company Number: US-PFIZER INC-2006123367

PATIENT
  Sex: Female

DRUGS (9)
  1. NEURONTIN [Suspect]
     Indication: PAIN
  2. GABAPENTIN [Suspect]
     Indication: PAIN
  3. MORPHINE [Suspect]
  4. LORAZEPAM [Suspect]
  5. CLONAZEPAM [Suspect]
  6. FENTANYL [Suspect]
  7. PHENOBARBITAL TAB [Suspect]
  8. PROPOXYPHENE HYDROCHLORIDE [Suspect]
  9. ACETAMINOPHEN [Suspect]

REACTIONS (6)
  - COMPLETED SUICIDE [None]
  - DRUG INEFFECTIVE [None]
  - INTENTIONAL OVERDOSE [None]
  - LOSS OF CONSCIOUSNESS [None]
  - MULTIPLE DRUG OVERDOSE INTENTIONAL [None]
  - SUICIDE ATTEMPT [None]
